FAERS Safety Report 6578812-8 (Version None)
Quarter: 2010Q1

REPORT INFORMATION
  Report Type: 
  Country: None (occurrence: None)
  Receive Date: 20100202
  Receipt Date: 20100118
  Transmission Date: 20100710
  Serious: Yes (Hospitalization)
  Sender: FDA-Public Use
  Company Number: AUR-APL-2010-00170

PATIENT
  Age: 67 Year
  Sex: Female
  Weight: 85 kg

DRUGS (14)
  1. METFORMIN (DIABEX) [Suspect]
     Indication: TYPE 2 DIABETES MELLITUS
     Dosage: 1000MG, BID, ORAL
     Route: 048
     Dates: start: 20020101
  2. CP-690.550;PLACEBO [Suspect]
     Indication: RHEUMATOID ARTHRITIS
     Dosage: BID, ORAL
     Route: 048
     Dates: start: 20090925
  3. METHOTREXATE TABLET (METHOBLASTIN) [Suspect]
     Indication: RHEUMATOID ARTHRITIS
     Dosage: 10MG-WEEKLY-ORAL
     Route: 048
     Dates: start: 20010101
  4. GLICLAZIDE (GLYADE) [Suspect]
     Indication: TYPE 2 DIABETES MELLITUS
     Dosage: 40MG-BID-ORAL
     Route: 048
     Dates: start: 20020101
  5. AMITRIPTYLINE (ENDEP) TABLET [Suspect]
     Indication: FIBROMYALGIA
     Dosage: 10MG - DAILY - ORAL
     Route: 048
     Dates: start: 20020101, end: 20100102
  6. FERROUS SULFATE TAB [Concomitant]
  7. FOLIC ACID [Concomitant]
  8. PARIET [Concomitant]
  9. PREDNISOLONE [Concomitant]
  10. LEVOTHYROXINE SODIUM [Concomitant]
  11. FISH OIL [Concomitant]
  12. VIT B12 [Concomitant]
  13. MULTI-VITAMIN [Concomitant]
  14. LIPITOR [Concomitant]

REACTIONS (3)
  - BILE DUCT STONE [None]
  - EPIGASTRIC DISCOMFORT [None]
  - PANCREATITIS [None]
